FAERS Safety Report 6400584-8 (Version None)
Quarter: 2009Q4

REPORT INFORMATION
  Report Type: 
  Country: None (occurrence: None)
  Receive Date: 20091014
  Receipt Date: 20091002
  Transmission Date: 20100525
  Serious: Yes (Other)
  Sender: FDA-Public Use
  Company Number: PHHY2009CA42835

PATIENT
  Sex: Female

DRUGS (1)
  1. DIOVAN HCT [Suspect]
     Dosage: 1 DF, QD
     Route: 048

REACTIONS (3)
  - BLOOD URIC ACID INCREASED [None]
  - DIABETES MELLITUS [None]
  - PITUITARY TUMOUR REMOVAL [None]
